FAERS Safety Report 22147107 (Version 5)
Quarter: 2023Q4

REPORT INFORMATION
  Report Type: Spontaneous
  Country: US (occurrence: US)
  Receive Date: 20230328
  Receipt Date: 20231228
  Transmission Date: 20240110
  Serious: Yes (Hospitalization)
  Sender: FDA-Public Use
  Company Number: US-BoehringerIngelheim-2023-BI-227872

PATIENT
  Age: 73 Year
  Sex: Female

DRUGS (32)
  1. JARDIANCE [Suspect]
     Active Substance: EMPAGLIFLOZIN
     Indication: Product used for unknown indication
  2. JARDIANCE [Suspect]
     Active Substance: EMPAGLIFLOZIN
  3. JARDIANCE [Suspect]
     Active Substance: EMPAGLIFLOZIN
  4. aspirin 81 mg tablet [Concomitant]
     Indication: Product used for unknown indication
     Route: 048
  5. Acetaminophen 325 tablet [Concomitant]
     Indication: Pain
     Dosage: 2 TABLET EVERY 6 HOUR FOR 10 DAYS
     Route: 048
  6. ALPRAZOLAM [Concomitant]
     Active Substance: ALPRAZOLAM
     Indication: Product used for unknown indication
     Route: 048
  7. ATORVASTATIN CALCIUM [Concomitant]
     Active Substance: ATORVASTATIN CALCIUM
     Indication: Product used for unknown indication
     Route: 048
  8. Cholecalciferol(Vitamin d3)1,250mcg(50,000unit0 capsule [Concomitant]
     Indication: Product used for unknown indication
     Dosage: 1250 MCG (50,000 UNIT)
     Route: 048
  9. Clopidogrel 75mg tablet [Concomitant]
     Indication: Product used for unknown indication
     Route: 048
  10. Cyclobenzaprine 10 mg tablet [Concomitant]
     Indication: Muscle spasms
     Route: 048
  11. Ducusate sodium 100mg capusle [Concomitant]
     Indication: Constipation
     Route: 048
  12. DULOXETINE HYDROCHLORIDE [Concomitant]
     Active Substance: DULOXETINE HYDROCHLORIDE
     Indication: Product used for unknown indication
     Route: 048
  13. enoxaparin 40 mg/0.4ml subcutaneous syringe [Concomitant]
     Indication: Product used for unknown indication
     Dosage: 40 MG/0.4 ML
     Route: 058
  14. EZETIMIBE [Concomitant]
     Active Substance: EZETIMIBE
     Indication: Product used for unknown indication
     Route: 048
  15. GLIPIZIDE [Concomitant]
     Active Substance: GLIPIZIDE
     Indication: Product used for unknown indication
     Route: 048
  16. Hydrocodone 7.5mg-acetaminophen 325 mg tablet [Concomitant]
     Indication: Product used for unknown indication
     Dosage: HYDROCODONE 7.5MG-ACETAMINOPHEN 325 MG
     Route: 048
  17. Isosorbide mononitrate ER 30mg tablet [Concomitant]
     Indication: Product used for unknown indication
     Dates: start: 20230124
  18. Letrozole  2.5mg tablet [Concomitant]
     Indication: Product used for unknown indication
     Route: 048
  19. Losartan  25mg tablet [Concomitant]
     Indication: Product used for unknown indication
     Route: 048
  20. magnesium oxide  500mg tablet [Concomitant]
     Indication: Product used for unknown indication
     Route: 048
     Dates: start: 20230124
  21. METOPROLOL TARTRATE [Concomitant]
     Active Substance: METOPROLOL TARTRATE
     Indication: Product used for unknown indication
     Route: 048
  22. naloxone 4 mg/actuation nasal spray [Concomitant]
     Indication: Product used for unknown indication
     Dosage: 4 MG/ACTUATION NASAL SPRAY?INSTILL A SINGLE SPRAY IN ONE NOSTRIL CALL 911. MAY REPEAT AFTER 2-3 MINU
  23. nitroglycerin 0.3 sublingual tablet [Concomitant]
     Indication: Chest pain
     Dosage: UNDER TONGUE AS NEEDED
  24. NovoLlN 70/30 U-100 Insulin 100 unit/mL subcutaneous suspension [Concomitant]
     Indication: Product used for unknown indication
     Dosage: INJECT 35 UNITS UNDER THE SKIN EVERY MORNING AND 40 UNITS EVERY EVENING
     Route: 058
  25. ondansetron 4 mg tablet [Concomitant]
     Indication: Nausea
     Dosage: INJECT 35 UNITS UNDER THE SKIN EVERY MORNING AND 40 UNITS EVERY EVENING
  26. ondansetron 4 mg tablet [Concomitant]
     Indication: Vomiting
  27. prednlsoLONE acatate 1 % eye drops,suspension [Concomitant]
     Indication: Product used for unknown indication
     Dosage: 1 % EYE DROPS,SUSPENSION?SHAKE LIQUID AND INSTILL 1 PROP IN RIGHT EYE
     Route: 058
  28. silver sulfadiazine 1 % topical cream [Concomitant]
     Indication: Wound
     Dosage: APPLY TO THE AFFECTED AREA DALY
     Route: 058
  29. tiZANidine 4 mg tablet [Concomitant]
     Indication: Product used for unknown indication
     Route: 048
  30. Torsemide 20 mg tablet [Concomitant]
     Indication: Product used for unknown indication
     Route: 048
  31. Trazodone 20 mg tablet [Concomitant]
     Indication: Product used for unknown indication
     Route: 048
  32. vitamin D3 50 mcg (2,000 unit) capsule [Concomitant]
     Indication: Product used for unknown indication
     Dosage: 50 MCG (2,000 UNIT) CAPSULE
     Route: 048

REACTIONS (2)
  - Cardiac operation [Unknown]
  - Blood glucose increased [Unknown]
